FAERS Safety Report 10550730 (Version 1)
Quarter: 2014Q4

REPORT INFORMATION
  Report Type: Spontaneous
  Country: US (occurrence: None)
  Receive Date: 20141028
  Receipt Date: 20141028
  Transmission Date: 20150529
  Serious: No
  Sender: FDA-Public Use
  Company Number: None

PATIENT
  Age: 37 Year
  Sex: Female
  Weight: 107.96 kg

DRUGS (2)
  1. ZIPRASIDONE (GENERIC FOR) GEODON [Suspect]
     Active Substance: ZIPRASIDONE HYDROCHLORIDE\ZIPRASIDONE MESYLATE
     Indication: DELUSION
     Dosage: 80 MG, 30 PILLS; 1 PILL A DAY AT LAST MEAL, BY MOUTH
     Dates: start: 201401, end: 201403
  2. HERBS [Concomitant]

REACTIONS (3)
  - Insomnia [None]
  - Excessive eye blinking [None]
  - Fatigue [None]

NARRATIVE: CASE EVENT DATE: 20140130
